FAERS Safety Report 5735110-X (Version None)
Quarter: 2008Q2

REPORT INFORMATION
  Report Type: 
  Country: None (occurrence: None)
  Receive Date: 20080512
  Receipt Date: 20080502
  Transmission Date: 20081010
  Serious: Yes (Other)
  Sender: FDA-Public Use
  Company Number: GB-PURDUE-GBR_2008_0003995

PATIENT
  Age: 61 Year
  Sex: Male

DRUGS (3)
  1. MORPHINE SULFATE [Suspect]
     Indication: MUSCULOSKELETAL PAIN
     Dosage: 100 MG, DAILY
     Route: 065
  2. NSAID'S [Concomitant]
  3. TRICYCLIC ANTIDEPRESSANTS [Concomitant]

REACTIONS (1)
  - SUICIDAL IDEATION [None]
